FAERS Safety Report 13422989 (Version 1)
Quarter: 2017Q2

REPORT INFORMATION
  Report Type: Spontaneous
  Country: US (occurrence: US)
  Receive Date: 20170410
  Receipt Date: 20170410
  Transmission Date: 20170830
  Serious: No
  Sender: FDA-Public Use
  Company Number: None

PATIENT
  Age: 52 Year
  Sex: Female

DRUGS (1)
  1. TASIGNA [Suspect]
     Active Substance: NILOTINIB

REACTIONS (5)
  - Pain [None]
  - Abdominal discomfort [None]
  - Sensory disturbance [None]
  - Alopecia [None]
  - Rash generalised [None]

NARRATIVE: CASE EVENT DATE: 20170410
